FAERS Safety Report 7591849-5 (Version None)
Quarter: 2011Q3

REPORT INFORMATION
  Report Type: 
  Country: None (occurrence: None)
  Receive Date: 20110706
  Receipt Date: 20110627
  Transmission Date: 20111222
  Serious: Yes (Hospitalization, Other)
  Sender: FDA-Public Use
  Company Number: US-BAYER-201026189NA

PATIENT
  Age: 29 Year
  Sex: Female
  Weight: 88 kg

DRUGS (5)
  1. YAZ [Suspect]
     Indication: ORAL CONTRACEPTION
     Route: 048
     Dates: start: 20080101, end: 20080715
  2. MOTRIN [Concomitant]
     Indication: MUSCLE SPASMS
     Dosage: UNK UNK, PRN
  3. TYLENOL-500 [Concomitant]
     Indication: PAIN
     Dosage: 500 MG, PRN
     Route: 048
  4. YASMIN [Suspect]
     Indication: PRODUCT USED FOR UNKNOWN INDICATION
     Route: 048
     Dates: start: 20080101, end: 20080715
  5. IBUPROFEN [Concomitant]
     Indication: PRODUCT USED FOR UNKNOWN INDICATION

REACTIONS (12)
  - NAUSEA [None]
  - VOMITING [None]
  - PROCEDURAL PAIN [None]
  - GASTROOESOPHAGEAL REFLUX DISEASE [None]
  - DYSPEPSIA [None]
  - HEPATOMEGALY [None]
  - CHOLECYSTITIS CHRONIC [None]
  - CHOLELITHIASIS [None]
  - MUSCULOSKELETAL CHEST PAIN [None]
  - BACK PAIN [None]
  - ABDOMINAL PAIN [None]
  - HEPATIC STEATOSIS [None]
